FAERS Safety Report 11573127 (Version 3)
Quarter: 2015Q4

REPORT INFORMATION
  Report Type: Spontaneous
  Country: US (occurrence: US)
  Receive Date: 20150916
  Receipt Date: 20151104
  Transmission Date: 20160304
  Serious: No
  Sender: FDA-Public Use
  Company Number: US-ELI_LILLY_AND_COMPANY-US200910006748

PATIENT
  Age: 58 Year
  Sex: Female

DRUGS (5)
  1. FORTEO [Suspect]
     Active Substance: TERIPARATIDE
     Dosage: 20 UG, DAILY (1/D)
  2. FORTEO [Suspect]
     Active Substance: TERIPARATIDE
     Dosage: 20 UG, DAILY (1/D)
  3. FORTEO [Suspect]
     Active Substance: TERIPARATIDE
     Indication: OSTEOPOROSIS
     Dosage: 20 UG, DAILY (1/D)
     Dates: start: 20091002, end: 20091004
  4. FORTEO [Suspect]
     Active Substance: TERIPARATIDE
     Dosage: 20 UG, DAILY (1/D)
     Dates: start: 20091014
  5. FORTEO [Suspect]
     Active Substance: TERIPARATIDE
     Dosage: 20 UG, DAILY (1/D)

REACTIONS (14)
  - Joint swelling [Not Recovered/Not Resolved]
  - Oropharyngeal pain [Recovered/Resolved]
  - Pain in extremity [Unknown]
  - Swelling [Unknown]
  - Musculoskeletal pain [Recovered/Resolved]
  - Pyrexia [Unknown]
  - Fall [Recovered/Resolved]
  - Skin abrasion [Unknown]
  - Post-traumatic pain [Recovered/Resolved]
  - Erythema [Unknown]
  - Rheumatoid arthritis [Unknown]
  - Musculoskeletal pain [Unknown]
  - Hyperhidrosis [Unknown]
  - Feeling of body temperature change [Unknown]

NARRATIVE: CASE EVENT DATE: 20091004
